FAERS Safety Report 17859820 (Version 1)
Quarter: 2020Q2

REPORT INFORMATION
  Report Type: Spontaneous
  Country: AT (occurrence: AT)
  Receive Date: 20200604
  Receipt Date: 20200604
  Transmission Date: 20200714
  Serious: Yes (Hospitalization, Other)
  Sender: FDA-Public Use
  Company Number: AT-JNJFOC-20200531639

PATIENT
  Age: 27 Year
  Sex: Female

DRUGS (9)
  1. VALPROIC ACID. [Suspect]
     Active Substance: VALPROIC ACID
     Indication: DEPRESSED MOOD
     Route: 065
  2. PAROXETINE. [Interacting]
     Active Substance: PAROXETINE
     Indication: DEPRESSED MOOD
     Dosage: 60 MILLIGRAM, QD
     Route: 065
  3. SERTRALINE [Suspect]
     Active Substance: SERTRALINE HYDROCHLORIDE
     Route: 065
  4. PAROXETINE. [Interacting]
     Active Substance: PAROXETINE
     Indication: FEAR
  5. RISPERDAL [Suspect]
     Active Substance: RISPERIDONE
     Indication: DEPRESSED MOOD
     Dosage: 100 MILLIGRAM, QD
     Route: 065
  6. RISPERDAL [Suspect]
     Active Substance: RISPERIDONE
     Indication: OBSESSIVE THOUGHTS
  7. PAROXETINE. [Interacting]
     Active Substance: PAROXETINE
     Indication: OBSESSIVE THOUGHTS
  8. RISPERDAL [Suspect]
     Active Substance: RISPERIDONE
     Indication: PRODUCT USED FOR UNKNOWN INDICATION
     Route: 065
  9. SERTRALINE [Suspect]
     Active Substance: SERTRALINE HYDROCHLORIDE
     Indication: PRODUCT USED FOR UNKNOWN INDICATION
     Route: 065

REACTIONS (11)
  - Amenorrhoea [Unknown]
  - Drug ineffective [Unknown]
  - Hypomania [Unknown]
  - Libido increased [Unknown]
  - Flat affect [Unknown]
  - Drug interaction [Unknown]
  - Intellectual disability [Unknown]
  - Generalised anxiety disorder [Unknown]
  - Treatment noncompliance [Unknown]
  - Agitation [Unknown]
  - Hyperprolactinaemia [Unknown]
